FAERS Safety Report 16754285 (Version 1)
Quarter: 2019Q3

REPORT INFORMATION
  Report Type: Report from Study
  Country: DE (occurrence: DE)
  Receive Date: 20190829
  Receipt Date: 20190829
  Transmission Date: 20191005
  Serious: Yes (Hospitalization)
  Sender: FDA-Public Use
  Company Number: DE-ROCHE-1727995

PATIENT
  Age: 83 Year
  Sex: Female

DRUGS (20)
  1. ROACTEMRA [Suspect]
     Active Substance: TOCILIZUMAB
     Route: 058
     Dates: start: 201811, end: 20190430
  2. VOLTAREN [DICLOFENAC] [Suspect]
     Active Substance: DICLOFENAC SODIUM
     Indication: RHEUMATOID ARTHRITIS
     Dosage: IN THE EVENING
     Route: 065
  3. DICLOFENAC [Concomitant]
     Active Substance: DICLOFENAC
  4. ASPIRIN. [Concomitant]
     Active Substance: ASPIRIN
     Route: 065
  5. ROACTEMRA [Suspect]
     Active Substance: TOCILIZUMAB
     Indication: RHEUMATOID ARTHRITIS
     Route: 058
     Dates: start: 20140723, end: 201807
  6. ROACTEMRA [Suspect]
     Active Substance: TOCILIZUMAB
     Route: 058
     Dates: start: 20190610
  7. VALSACOR [Concomitant]
     Active Substance: VALSARTAN
     Route: 065
  8. ROACTEMRA [Suspect]
     Active Substance: TOCILIZUMAB
     Route: 058
     Dates: start: 201806, end: 201807
  9. ZOPICLON [Concomitant]
     Active Substance: ZOPICLONE
  10. ROACTEMRA [Suspect]
     Active Substance: TOCILIZUMAB
     Route: 058
     Dates: end: 201805
  11. SULPIRID [Concomitant]
     Active Substance: SULPIRIDE
  12. SYNTESTAN [Concomitant]
     Active Substance: CLOPREDNOL
     Indication: PRODUCT USED FOR UNKNOWN INDICATION
     Route: 065
  13. ROACTEMRA [Suspect]
     Active Substance: TOCILIZUMAB
     Route: 058
     Dates: start: 20190729, end: 20190810
  14. ROACTEMRA [Suspect]
     Active Substance: TOCILIZUMAB
     Route: 058
     Dates: start: 201908
  15. PANTOPRAZOL [PANTOPRAZOLE] [Concomitant]
     Active Substance: PANTOPRAZOLE
  16. TORASEMID [Concomitant]
     Active Substance: TORSEMIDE
  17. BISOPROLOL [Concomitant]
     Active Substance: BISOPROLOL
     Route: 065
  18. CANDESARTAN. [Concomitant]
     Active Substance: CANDESARTAN
  19. CORTISONE [Concomitant]
     Active Substance: CORTISONE
     Indication: PRODUCT USED FOR UNKNOWN INDICATION
     Route: 065
  20. SYNTESTAN [Concomitant]
     Active Substance: CLOPREDNOL
     Route: 065

REACTIONS (7)
  - Balance disorder [Not Recovered/Not Resolved]
  - Cerebellar stroke [Not Recovered/Not Resolved]
  - Dizziness [Not Recovered/Not Resolved]
  - Renal function test abnormal [Not Recovered/Not Resolved]
  - Hypotension [Recovered/Resolved]
  - Pain [Not Recovered/Not Resolved]
  - Influenza [Recovered/Resolved]

NARRATIVE: CASE EVENT DATE: 20160301
